FAERS Safety Report 8729612 (Version 2)
Quarter: 2015Q2

REPORT INFORMATION
  Report Type: Report from Study
  Country: US (occurrence: US)
  Receive Date: 20120817
  Receipt Date: 20150403
  Transmission Date: 20150821
  Serious: Yes (Other)
  Sender: FDA-Public Use
  Company Number: US-ROCHE-1099733

PATIENT
  Sex: Male

DRUGS (5)
  1. STREPTOKINASE [Concomitant]
     Active Substance: STREPTOKINASE
     Dosage: 1.5 MIL. U IN 150 ML DISTILLED WATER
     Route: 040
  2. EMINASE [Concomitant]
     Active Substance: ANISTREPLASE
     Dosage: 30 UNIT
     Route: 065
  3. ACETYLSALICYLIC ACID [Concomitant]
     Active Substance: ASPIRIN
     Route: 048
  4. ACTIVASE [Suspect]
     Active Substance: ALTEPLASE
     Indication: ACUTE MYOCARDIAL INFARCTION
     Dosage: 10 MG IVP TO START FOLLOWE BY 50 MG PER HOUR THEN 40 MG AT 20 MG PER HOUR FOR 2 HOUR
     Route: 042
  5. HYDROCORTISONE. [Concomitant]
     Active Substance: HYDROCORTISONE
     Route: 042

REACTIONS (1)
  - Vision blurred [Unknown]
